FAERS Safety Report 6408959-8 (Version None)
Quarter: 2009Q4

REPORT INFORMATION
  Report Type: 
  Country: None (occurrence: None)
  Receive Date: 20091019
  Receipt Date: 20091007
  Transmission Date: 20100525
  Serious: Yes (Life-Threatening, Other)
  Sender: FDA-Public Use
  Company Number: 2009AL004318

PATIENT
  Age: 37 Year
  Sex: Female

DRUGS (5)
  1. RANITIDINE SYRUP (RANITIDINE ORAL SOLUTION [Suspect]
     Indication: PROPHYLAXIS
     Dosage: 50 MG; X1; IV
     Route: 042
     Dates: start: 20090608, end: 20090608
  2. CITALOPRAM [Concomitant]
  3. NOVORAPID [Concomitant]
  4. LANTUS [Concomitant]
  5. HYDROCORTISONE [Concomitant]

REACTIONS (5)
  - DRUG EXPOSURE DURING PREGNANCY [None]
  - DYSPHONIA [None]
  - RHINORRHOEA [None]
  - SENSATION OF FOREIGN BODY [None]
  - SNEEZING [None]
